FAERS Safety Report 21766568 (Version 2)
Quarter: 2023Q1

REPORT INFORMATION
  Report Type: Spontaneous
  Country: US (occurrence: US)
  Receive Date: 20221222
  Receipt Date: 20230102
  Transmission Date: 20230417
  Serious: Yes (Hospitalization)
  Sender: FDA-Public Use
  Company Number: US-TEVA-2022-US-2837297

PATIENT
  Age: 5 Decade
  Sex: Female

DRUGS (1)
  1. PREDNISOLONE [Suspect]
     Active Substance: PREDNISOLONE
     Indication: Hepatitis alcoholic
     Dosage: 40 MILLIGRAM DAILY;
     Route: 065

REACTIONS (6)
  - Spontaneous bacterial peritonitis [Recovering/Resolving]
  - Salmonellosis [Recovering/Resolving]
  - Sepsis [Recovering/Resolving]
  - Respiratory distress [Recovering/Resolving]
  - Pulmonary oedema [Recovering/Resolving]
  - Oedema [Recovering/Resolving]
